FAERS Safety Report 6982477-0 (Version None)
Quarter: 2010Q3

REPORT INFORMATION
  Report Type: 
  Country: None (occurrence: None)
  Receive Date: 20100914
  Receipt Date: 20100207
  Transmission Date: 20110219
  Serious: Yes (Other)
  Sender: FDA-Public Use
  Company Number: US-PFIZER INC-2010016328

PATIENT
  Sex: Male

DRUGS (1)
  1. LYRICA [Suspect]
     Dosage: 150 MG, 1 PILL IN THE MORNING AND 2 PILLS IN THE EVENING
     Route: 048
     Dates: start: 20100201

REACTIONS (1)
  - URINARY INCONTINENCE [None]
